FAERS Safety Report 20438636 (Version 1)
Quarter: 2022Q1

REPORT INFORMATION
  Report Type: Spontaneous
  Country: US (occurrence: None)
  Receive Date: 20220204
  Receipt Date: 20220204
  Transmission Date: 20220423
  Serious: Yes (Hospitalization)
  Sender: FDA-Public Use
  Company Number: None

PATIENT
  Age: 61 Year
  Sex: Male

DRUGS (6)
  1. EMPAGLIFLOZIN [Suspect]
     Active Substance: EMPAGLIFLOZIN
     Indication: Type 2 diabetes mellitus
     Dosage: FREQUENCY : DAILY;?
     Route: 048
     Dates: start: 20200724, end: 20220116
  2. Atorvastatin 80 mg QD [Concomitant]
     Dates: start: 20200724, end: 20220204
  3. Brilinta 90 mg BID [Concomitant]
     Dates: start: 20200724, end: 20220204
  4. Isosorbide mononitrate ER 30 mg QD [Concomitant]
     Dates: start: 20201203, end: 20220204
  5. Lisinopril 5 mg QD [Concomitant]
     Dates: start: 20200724, end: 20220204
  6. Metoprolol 50 mg BID [Concomitant]
     Dates: start: 20200724, end: 20220204

REACTIONS (3)
  - Fournier^s gangrene [None]
  - Drug hypersensitivity [None]
  - Diabetes mellitus inadequate control [None]

NARRATIVE: CASE EVENT DATE: 20220116
